FAERS Safety Report 21408591 (Version 2)
Quarter: 2022Q4

REPORT INFORMATION
  Report Type: Spontaneous
  Country: US (occurrence: None)
  Receive Date: 20221004
  Receipt Date: 20221103
  Transmission Date: 20230113
  Serious: No
  Sender: FDA-Public Use
  Company Number: 2022A311160

PATIENT
  Sex: Female
  Weight: 74.8 kg

DRUGS (1)
  1. SYMLIN [Suspect]
     Active Substance: PRAMLINTIDE ACETATE
     Indication: Diabetes mellitus
     Dosage: 1MG/1.5ML PEN 3 TIMES A DAY
     Route: 058

REACTIONS (4)
  - Visual impairment [Unknown]
  - Eye disorder [Unknown]
  - Neuropathy peripheral [Unknown]
  - Device breakage [Unknown]
